FAERS Safety Report 7654468-8 (Version None)
Quarter: 2011Q3

REPORT INFORMATION
  Report Type: 
  Country: None (occurrence: None)
  Receive Date: 20110803
  Receipt Date: 20110722
  Transmission Date: 20111222
  Serious: Yes (Other)
  Sender: FDA-Public Use
  Company Number: DE-GENENTECH-322317

PATIENT
  Age: 69 Year
  Sex: Male
  Weight: 93 kg

DRUGS (1)
  1. RITUXIMAB [Suspect]
     Indication: PRODUCT USED FOR UNKNOWN INDICATION
     Dosage: UNK
     Route: 042

REACTIONS (4)
  - LEUKOPENIA [None]
  - THROMBOCYTOPENIA [None]
  - SOMNOLENCE [None]
  - NEUTROPENIA [None]
